FAERS Safety Report 8535561 (Version 4)
Quarter: 2013Q1

REPORT INFORMATION
  Report Type: Spontaneous
  Country: US (occurrence: None)
  Receive Date: 20120411
  Receipt Date: 20130304
  Transmission Date: 20140127
  Serious: Yes (Hospitalization, Other)
  Sender: FDA-Public Use
  Company Number: 003-071

PATIENT
  Age: 4 Year
  Sex: Female
  Weight: 19.5 kg

DRUGS (1)
  1. CROFAB [Suspect]
     Indication: SNAKE BITE
     Dosage: 10 VIALS TOTAL
     Dates: start: 20120326, end: 20120327

REACTIONS (4)
  - Hypotension [None]
  - Compartment syndrome [None]
  - Pulse pressure increased [None]
  - Infusion related reaction [None]
